FAERS Safety Report 20073704 (Version 3)
Quarter: 2022Q2

REPORT INFORMATION
  Report Type: Report from Study
  Country: CA (occurrence: CA)
  Receive Date: 20211116
  Receipt Date: 20220412
  Transmission Date: 20220721
  Serious: Yes (Hospitalization, Other)
  Sender: FDA-Public Use
  Company Number: CA-SHIRE-CA202002751

PATIENT
  Age: 15 Year
  Sex: Male

DRUGS (3)
  1. HUMAN IMMUNOGLOBULIN G [Suspect]
     Active Substance: HUMAN IMMUNOGLOBULIN G
     Indication: Primary immunodeficiency syndrome
     Dosage: 6 GRAM, 1/WEEK
     Route: 058
     Dates: start: 20191001
  2. GAMMAGARD [Concomitant]
     Active Substance: HUMAN IMMUNOGLOBULIN G
     Dosage: UNK
     Route: 065
     Dates: end: 20190809
  3. PREDNISONE [Concomitant]
     Active Substance: PREDNISONE
     Indication: Optic neuritis
     Dosage: UNK
     Route: 065
     Dates: start: 2018

REACTIONS (9)
  - Spinal compression fracture [Not Recovered/Not Resolved]
  - Muscle spasms [Recovering/Resolving]
  - Deep brain stimulation [Recovered/Resolved]
  - Injection site swelling [Unknown]
  - Blood pressure increased [Unknown]
  - Injection site erythema [Unknown]
  - Bedridden [Unknown]
  - Wheelchair user [Unknown]
  - Device issue [Unknown]

NARRATIVE: CASE EVENT DATE: 20200521
